FAERS Safety Report 25946935 (Version 1)
Quarter: 2025Q4

REPORT INFORMATION
  Report Type: Spontaneous
  Country: EU (occurrence: EU)
  Receive Date: 20251022
  Receipt Date: 20251022
  Transmission Date: 20260117
  Serious: Yes (Other)
  Sender: STRIDES
  Company Number: None

PATIENT

DRUGS (11)
  1. HYDROCORTISONE [Suspect]
     Active Substance: HYDROCORTISONE
     Indication: Pemphigoid
     Dosage: 0.5 MG/KG BODYWEIGHT (BODYWEIGHT)
     Route: 048
  2. HYDROCORTISONE [Suspect]
     Active Substance: HYDROCORTISONE
     Dosage: 0.3 MG/KG BODYWEIGHT (BODYWEIGHT)
     Route: 048
  3. DEXAMETHASONE [Suspect]
     Active Substance: DEXAMETHASONE
     Indication: Pemphigoid
     Dosage: 0.4 MG/KG BODYWEIGHT (BODYWEIGHT)
     Route: 048
  4. MOMETASONE FUROATE [Suspect]
     Active Substance: MOMETASONE FUROATE
     Indication: Pemphigoid
     Dosage: UNK UNK, EVERY 12 HRS
     Route: 065
  5. MOMETASONE FUROATE [Suspect]
     Active Substance: MOMETASONE FUROATE
     Dosage: UNK UNK, QD
     Route: 065
  6. DAPSONE [Concomitant]
     Active Substance: DAPSONE
     Indication: Pemphigoid
     Dosage: 1 MILLIGRAM/KILOGRAM
     Route: 048
  7. DAPSONE [Concomitant]
     Active Substance: DAPSONE
     Dosage: 2 MG/KG BODYWEIGHT (BODYWEIGHT)
     Route: 048
  8. DAPSONE [Concomitant]
     Active Substance: DAPSONE
     Dosage: 1 MILLIGRAM/KILOGRAM
     Route: 048
  9. DAPSONE [Concomitant]
     Active Substance: DAPSONE
     Dosage: 0.8 MILLIGRAM/KILOGRAM
     Route: 048
  10. CETIRIZINE [Concomitant]
     Active Substance: CETIRIZINE HYDROCHLORIDE
     Indication: Pemphigoid
     Dosage: 0.6 MG/KG BODYWEIGHT (BODYWEIGHT)
     Route: 065
  11. OCTENIDINE HYDROCHLORIDE [Concomitant]
     Active Substance: OCTENIDINE HYDROCHLORIDE
     Indication: Pemphigoid
     Dosage: UNK
     Route: 065

REACTIONS (2)
  - Pseudo Cushing^s syndrome [Unknown]
  - Off label use [Unknown]
